FAERS Safety Report 11510130 (Version 1)
Quarter: 2015Q3

REPORT INFORMATION
  Report Type: Spontaneous
  Country: US (occurrence: US)
  Receive Date: 20150915
  Receipt Date: 20150915
  Transmission Date: 20151125
  Serious: Yes (Death, Other)
  Sender: FDA-Public Use
  Company Number: US-JNJFOC-20090701678

PATIENT
  Age: 46 Year
  Sex: Female

DRUGS (4)
  1. UNSPECIFIED 325 MG ACETAMINOPHEN [Suspect]
     Active Substance: ACETAMINOPHEN
     Indication: PAIN
     Dosage: 325-650 MG
     Route: 048
  2. UNSPECIFIED 325 MG ACETAMINOPHEN [Suspect]
     Active Substance: ACETAMINOPHEN
     Indication: HEADACHE
     Dosage: 325-650 MG
     Route: 048
  3. UNSPECIFIED 325 MG ACETAMINOPHEN [Suspect]
     Active Substance: ACETAMINOPHEN
     Indication: PYREXIA
     Dosage: 325-650 MG
     Route: 048
  4. DARVOCET [Suspect]
     Active Substance: ACETAMINOPHEN\PROPOXYPHENE HYDROCHLORIDE
     Indication: PAIN
     Dosage: 1-2 TABLETS
     Route: 048

REACTIONS (7)
  - Death [Fatal]
  - Acute hepatic failure [Fatal]
  - Overdose [Fatal]
  - Confusional state [Fatal]
  - Hypotension [Fatal]
  - Jaundice [Fatal]
  - Respiratory distress [Fatal]
